FAERS Safety Report 7807131-4 (Version None)
Quarter: 2011Q4

REPORT INFORMATION
  Report Type: 
  Country: None (occurrence: None)
  Receive Date: 20111011
  Receipt Date: 20110928
  Transmission Date: 20120403
  Serious: Yes (Hospitalization)
  Sender: FDA-Public Use
  Company Number: US-ELI_LILLY_AND_COMPANY-US201007004580

PATIENT
  Sex: Female

DRUGS (18)
  1. FORTEO [Suspect]
     Dosage: 20 UG, QD
     Route: 058
  2. ALBUTEROL [Concomitant]
  3. FORTEO [Suspect]
     Indication: OSTEOPOROSIS
     Dosage: 20 UG, DAILY (1/D)
     Route: 058
     Dates: start: 20100625
  4. FORTEO [Suspect]
     Dosage: 20 UG, QD
     Route: 058
  5. PREDNISONE [Concomitant]
  6. FLUTICASONE PROPIONATE [Concomitant]
     Indication: HYPERSENSITIVITY
  7. ADVIL LIQUI-GELS [Concomitant]
     Dosage: UNK, PRN
  8. FORTEO [Suspect]
     Dosage: 20 UG, DAILY (1/D)
     Route: 058
  9. FORTEO [Suspect]
     Dosage: 20 UG, DAILY (1/D)
     Route: 058
     Dates: start: 20101016
  10. FORTEO [Suspect]
     Dosage: 20 UG, QD
     Route: 058
  11. THEOPHYLLINE [Concomitant]
     Dosage: 200 MG, UNK
  12. FORTEO [Suspect]
     Dosage: 20 UG, QD
     Route: 058
  13. NASONEX [Concomitant]
  14. VENTOLIN [Concomitant]
  15. MUCINEX [Concomitant]
  16. FORTEO [Suspect]
     Dosage: 20 UG, QD
     Route: 058
  17. SYMBICORT [Concomitant]
     Dosage: UNK, BID
  18. CHLORPHENIRAMINE MALEATE [Concomitant]

REACTIONS (9)
  - ARTHRITIS [None]
  - FLUSHING [None]
  - HAND FRACTURE [None]
  - CHRONIC OBSTRUCTIVE PULMONARY DISEASE [None]
  - ARTHRALGIA [None]
  - INJECTION SITE PAIN [None]
  - MUSCLE SPASMS [None]
  - PAIN [None]
  - FALL [None]
